FAERS Safety Report 4334806-4 (Version None)
Quarter: 2004Q2

REPORT INFORMATION
  Report Type: 
  Country: None (occurrence: None)
  Receive Date: 20040407
  Receipt Date: 20040407
  Transmission Date: 20050107
  Serious: Yes (Life-Threatening, Hospitalization)
  Sender: FDA-Public Use
  Company Number: None

PATIENT
  Age: 24 Year
  Sex: Female

DRUGS (6)
  1. VANCOMYCIN [Suspect]
     Indication: ABSCESS
     Dosage: 1000 MG IV Q 12 H
     Route: 042
  2. ACETAMINOPHEN [Concomitant]
  3. METHYLPREDNISOLONE [Concomitant]
  4. MUPIROCIN OMTMEA [Concomitant]
  5. OXYCODONE [Concomitant]
  6. POTASSIUM CHLORIDE [Concomitant]

REACTIONS (1)
  - ANAPHYLACTIC REACTION [None]
